FAERS Safety Report 6279897-9 (Version None)
Quarter: 2009Q3

REPORT INFORMATION
  Report Type: 
  Country: None (occurrence: None)
  Receive Date: 20090723
  Receipt Date: 20090716
  Transmission Date: 20100115
  Serious: Yes (Death, Other)
  Sender: FDA-Public Use
  Company Number: PHEH2009US06613

PATIENT
  Sex: Female
  Weight: 73.469 kg

DRUGS (2)
  1. EXJADE [Suspect]
     Indication: ANAEMIA
     Dosage: 1500 MG DAILY
     Route: 048
     Dates: start: 20090401, end: 20090411
  2. EXJADE [Suspect]
     Indication: SERUM FERRITIN INCREASED

REACTIONS (16)
  - BREATH SOUNDS ABNORMAL [None]
  - CARDIAC FAILURE CONGESTIVE [None]
  - DEPRESSED LEVEL OF CONSCIOUSNESS [None]
  - FLUID OVERLOAD [None]
  - LEUKOCYTOSIS [None]
  - MALIGNANT NEOPLASM PROGRESSION [None]
  - MALNUTRITION [None]
  - METABOLIC ACIDOSIS [None]
  - PERIPHERAL COLDNESS [None]
  - PNEUMONIA [None]
  - RASH [None]
  - RENAL FAILURE ACUTE [None]
  - RENAL TUBULAR NECROSIS [None]
  - STARVATION [None]
  - TACHYCARDIA [None]
  - WEIGHT DECREASED [None]
